FAERS Safety Report 5061502-0 (Version None)
Quarter: 2006Q3

REPORT INFORMATION
  Report Type: 
  Country: None (occurrence: None)
  Receive Date: 20060703
  Receipt Date: 20060421
  Transmission Date: 20061208
  Serious: No
  Sender: FDA-Public Use
  Company Number: 2006PV012517

PATIENT
  Age: 73 Year
  Sex: Male
  Weight: 107.5025 kg

DRUGS (8)
  1. SYMLIN [Suspect]
     Indication: DIABETES MELLITUS NON-INSULIN-DEPENDENT
     Dosage: 60 MCG;TID;SC
     Route: 058
     Dates: start: 20060329, end: 20060412
  2. LANTUS [Concomitant]
  3. HUMALOG [Concomitant]
  4. AVANDAMET [Concomitant]
  5. AMARYL [Concomitant]
  6. ACE INHIBITOR [Concomitant]
  7. CRESTOR [Concomitant]
  8. ASPIRIN [Concomitant]

REACTIONS (2)
  - DYSPEPSIA [None]
  - FATIGUE [None]
